FAERS Safety Report 17291433 (Version 2)
Quarter: 2020Q1

REPORT INFORMATION
  Report Type: Spontaneous
  Country: US (occurrence: US)
  Receive Date: 20200121
  Receipt Date: 20200211
  Transmission Date: 20200409
  Serious: No
  Sender: FDA-Public Use
  Company Number: US-JNJFOC-20200107955

PATIENT
  Age: 75 Year
  Sex: Female

DRUGS (1)
  1. TYLENOL [Suspect]
     Active Substance: ACETAMINOPHEN
     Indication: OSTEOARTHRITIS
     Dosage: 2 TABLETS 3X A DAY
     Route: 048
     Dates: start: 20200107

REACTIONS (3)
  - Product storage error [Unknown]
  - Product packaging issue [Unknown]
  - Pain [Unknown]

NARRATIVE: CASE EVENT DATE: 20200107
